FAERS Safety Report 13697776 (Version 6)
Quarter: 2020Q3

REPORT INFORMATION
  Report Type: Report from Study
  Country: HU (occurrence: HU)
  Receive Date: 20170628
  Receipt Date: 20170922
  Transmission Date: 20201105
  Serious: Yes (Hospitalization)
  Sender: FDA-Public Use
  Company Number: HU-JNJFOC-20170623056

PATIENT
  Age: 59 Year
  Sex: Male
  Weight: 78 kg

DRUGS (12)
  1. EMOZUL [Concomitant]
     Indication: GASTROOESOPHAGEAL REFLUX DISEASE
     Route: 048
     Dates: start: 201305
  2. BISOBLOCK [Concomitant]
     Active Substance: BISOPROLOL FUMARATE
     Indication: HYPERTENSION
     Route: 048
     Dates: start: 2010
  3. INDAPAMID [Concomitant]
     Active Substance: INDAPAMIDE
     Indication: HYPERTENSION
     Route: 048
     Dates: start: 201612
  4. USTEKINUMAB [Suspect]
     Active Substance: USTEKINUMAB
     Route: 058
  5. USTEKINUMAB [Suspect]
     Active Substance: USTEKINUMAB
     Indication: CROHN^S DISEASE
     Route: 058
     Dates: start: 20131206
  6. KALDYUM [Concomitant]
     Active Substance: POTASSIUM CHLORIDE
     Indication: PROPHYLAXIS
     Route: 065
  7. MESALAZIN [Concomitant]
     Active Substance: MESALAMINE
     Indication: CROHN^S DISEASE
     Route: 048
  8. FASTUM [Concomitant]
     Active Substance: KETOPROFEN
     Route: 061
     Dates: start: 20160307
  9. METHYLPREDNISOLONE. [Concomitant]
     Active Substance: METHYLPREDNISOLONE
     Indication: CROHN^S DISEASE
     Route: 048
     Dates: start: 1992
  10. YAROCEN [Concomitant]
     Indication: ANXIETY
     Route: 065
     Dates: start: 20160610
  11. PORTIRON [Concomitant]
     Indication: HYPERTENSION
     Route: 048
     Dates: start: 20160822
  12. XANAX [Concomitant]
     Active Substance: ALPRAZOLAM
     Indication: ANXIETY
     Route: 048
     Dates: start: 20160610

REACTIONS (1)
  - Transient ischaemic attack [Recovered/Resolved]

NARRATIVE: CASE EVENT DATE: 20170617
